FAERS Safety Report 9983248 (Version 1)
Quarter: 2014Q1

REPORT INFORMATION
  Report Type: Report from Study
  Country: US (occurrence: US)
  Receive Date: 20140307
  Receipt Date: 20140307
  Transmission Date: 20141002
  Serious: No
  Sender: FDA-Public Use
  Company Number: US-ABBVIE-13P-163-1178267-00

PATIENT
  Age: 45 Year
  Sex: Male

DRUGS (14)
  1. HUMIRA [Suspect]
     Indication: RHEUMATOID ARTHRITIS
     Dosage: INITAL DOSE
     Dates: start: 20131208
  2. ASPIRIN [Concomitant]
     Indication: PROPHYLAXIS
  3. OMEPRAZOLE [Concomitant]
     Indication: GASTRIC DISORDER
  4. OMEPRAZOLE [Concomitant]
     Indication: RHEUMATOID ARTHRITIS
  5. METHOTREXATE [Concomitant]
     Indication: RHEUMATOID ARTHRITIS
     Dosage: ON SATURDAYS
  6. FOLIC ACID [Concomitant]
     Indication: PRODUCT USED FOR UNKNOWN INDICATION
  7. ISONIAZID [Concomitant]
     Indication: HEPATITIS B VIRUS TEST POSITIVE
  8. VITAMIN B6 [Concomitant]
     Indication: HEPATITIS B VIRUS TEST POSITIVE
  9. DICYCLOMINE [Concomitant]
     Indication: GASTRIC DISORDER
  10. DICYCLOMINE [Concomitant]
     Indication: RHEUMATOID ARTHRITIS
  11. HYDROXYCHLOROQUINE [Concomitant]
     Indication: PRODUCT USED FOR UNKNOWN INDICATION
  12. LOVASTATIN [Concomitant]
     Indication: BLOOD CHOLESTEROL INCREASED
  13. NAPROXEN [Concomitant]
     Indication: PAIN
  14. NORCO [Concomitant]
     Indication: PAIN
     Dosage: 10/325 1/2 TO 1 TAB UP TO THREE TIMES A DAY, AS NEEDED

REACTIONS (2)
  - Injection site pain [Recovered/Resolved]
  - Pain in extremity [Recovered/Resolved]
